FAERS Safety Report 12410693 (Version 1)
Quarter: 2016Q2

REPORT INFORMATION
  Report Type: Spontaneous
  Country: None (occurrence: None)
  Receive Date: 20160526
  Receipt Date: 20160526
  Transmission Date: 20160815
  Serious: No
  Sender: FDA-Public Use
  Company Number: None

PATIENT
  Sex: Male

DRUGS (1)
  1. LOSARTAN/HCTZ [Suspect]
     Active Substance: HYDROCHLOROTHIAZIDE\LOSARTAN

REACTIONS (3)
  - Constipation [None]
  - Faeces hard [None]
  - Rectal injury [None]
